FAERS Safety Report 18409939 (Version 1)
Quarter: 2020Q4

REPORT INFORMATION
  Report Type: Spontaneous
  Country: US (occurrence: US)
  Receive Date: 20201021
  Receipt Date: 20201021
  Transmission Date: 20210114
  Serious: Yes (Hospitalization)
  Sender: FDA-Public Use
  Company Number: None

PATIENT
  Age: 76 Year
  Sex: Male
  Weight: 110.2 kg

DRUGS (1)
  1. OLAPARIB 300MG [Suspect]
     Active Substance: OLAPARIB
     Indication: PANCREATIC CARCINOMA
     Route: 048
     Dates: start: 20200323, end: 20200404

REACTIONS (7)
  - Ileus [None]
  - Delirium [None]
  - Fluid overload [None]
  - Urinary tract infection [None]
  - Urinary retention [None]
  - Pancreatic leak [None]
  - Disease complication [None]

NARRATIVE: CASE EVENT DATE: 20200402
